FAERS Safety Report 17648549 (Version 1)
Quarter: 2020Q2

REPORT INFORMATION
  Report Type: Spontaneous
  Country: US (occurrence: US)
  Receive Date: 20200409
  Receipt Date: 20200409
  Transmission Date: 20200713
  Serious: Yes (Hospitalization, Other)
  Sender: FDA-Public Use
  Company Number: US-JAZZ-JPI-P-021740

PATIENT
  Age: 39 Year
  Sex: Female

DRUGS (4)
  1. XYREM [Suspect]
     Active Substance: SODIUM OXYBATE
     Indication: CATAPLEXY
     Dosage: UNKNOWN, SINGLE
     Route: 048
  2. XYREM [Suspect]
     Active Substance: SODIUM OXYBATE
     Dosage: 6 GRAM, BID
     Route: 048
     Dates: start: 20090714
  3. INSECT REPELLENT [Suspect]
     Active Substance: UNSPECIFIED INGREDIENT
     Indication: INFECTION PROPHYLAXIS
  4. XYREM [Suspect]
     Active Substance: SODIUM OXYBATE
     Indication: NARCOLEPSY
     Route: 048
     Dates: start: 20060425

REACTIONS (25)
  - Frustration tolerance decreased [Unknown]
  - Skin burning sensation [Recovered/Resolved]
  - Formication [Recovered/Resolved]
  - Stress [Unknown]
  - Somnolence [Unknown]
  - Condition aggravated [Unknown]
  - Hypokalaemia [Recovered/Resolved]
  - Hypersensitivity [Recovered/Resolved]
  - Oedema peripheral [Recovered/Resolved]
  - Head injury [Unknown]
  - Erythema [Recovered/Resolved]
  - Hallucination, visual [Recovered/Resolved]
  - Weight decreased [Unknown]
  - Product administration error [Unknown]
  - Spondylitis [Unknown]
  - Confusional state [Recovered/Resolved]
  - Pituitary tumour benign [Unknown]
  - Unevaluable event [Unknown]
  - Skin irritation [Recovered/Resolved]
  - Discomfort [Unknown]
  - Skin discolouration [Recovered/Resolved]
  - Fatigue [Unknown]
  - Pain in extremity [Unknown]
  - Rash [Recovered/Resolved]
  - Somnambulism [Unknown]

NARRATIVE: CASE EVENT DATE: 2012
